FAERS Safety Report 20060659 (Version 7)
Quarter: 2023Q4

REPORT INFORMATION
  Report Type: Report from Study
  Country: CA (occurrence: CA)
  Receive Date: 20211112
  Receipt Date: 20231024
  Transmission Date: 20240109
  Serious: Yes (Other)
  Sender: FDA-Public Use
  Company Number: CA-TAKEDA-2021TUS069979

PATIENT
  Sex: Male

DRUGS (6)
  1. VEDOLIZUMAB [Suspect]
     Active Substance: VEDOLIZUMAB
     Indication: Colitis ulcerative
     Dosage: 300 MILLIGRAM
     Route: 042
     Dates: start: 20211027
  2. VEDOLIZUMAB [Suspect]
     Active Substance: VEDOLIZUMAB
     Dosage: 300 MILLIGRAM
     Route: 042
  3. VEDOLIZUMAB [Suspect]
     Active Substance: VEDOLIZUMAB
     Dosage: 300 MILLIGRAM
     Route: 042
  4. VEDOLIZUMAB [Suspect]
     Active Substance: VEDOLIZUMAB
     Dosage: 300 MILLIGRAM
     Route: 042
  5. PREDNISONE [Concomitant]
     Active Substance: PREDNISONE
     Dosage: UNK
     Dates: start: 20210929
  6. METHYLPREDNISOLONE [Concomitant]
     Active Substance: METHYLPREDNISOLONE
     Dosage: UNK

REACTIONS (2)
  - Colitis ulcerative [Unknown]
  - Gastric haemorrhage [Unknown]
